FAERS Safety Report 10586851 (Version 1)
Quarter: 2014Q4

REPORT INFORMATION
  Report Type: Spontaneous
  Country: US (occurrence: None)
  Receive Date: 20141114
  Receipt Date: 20141114
  Transmission Date: 20150529
  Serious: Yes (Other)
  Sender: FDA-Public Use
  Company Number: None

PATIENT
  Age: 65 Year
  Sex: Female
  Weight: 63.96 kg

DRUGS (1)
  1. SULFAMETHOXAZOLE-TRIMETHOPRIM (SMZ) [Suspect]
     Active Substance: SULFAMETHOXAZOLE\TRIMETHOPRIM
     Indication: URINARY TRACT INFECTION
     Dosage: 1 TAB
     Route: 048
     Dates: start: 20141002, end: 20141002

REACTIONS (15)
  - Tinnitus [None]
  - Nervous system disorder [None]
  - Nausea [None]
  - Dizziness [None]
  - Muscle disorder [None]
  - Vomiting [None]
  - Headache [None]
  - Facial pain [None]
  - Feeling abnormal [None]
  - Pain in extremity [None]
  - Gastrointestinal disorder [None]
  - Neck pain [None]
  - Neuralgia [None]
  - Bone pain [None]
  - Back pain [None]

NARRATIVE: CASE EVENT DATE: 20141002
